FAERS Safety Report 15373640 (Version 1)
Quarter: 2018Q4

REPORT INFORMATION
  Report Type: Spontaneous
  Country: FR (occurrence: FR)
  Receive Date: 20180912
  Receipt Date: 20180912
  Transmission Date: 20190204
  Serious: Yes (Hospitalization, Other)
  Sender: FDA-Public Use
  Company Number: FR-ABBVIE-18S-056-2481292-00

PATIENT
  Age: 48 Year
  Sex: Male
  Weight: 63 kg

DRUGS (17)
  1. EPIVIR [Concomitant]
     Active Substance: LAMIVUDINE
     Indication: HIV TEST POSITIVE
     Dosage: UNK UNK,UNK
     Route: 048
     Dates: start: 200812
  2. NORVIR [Suspect]
     Active Substance: RITONAVIR
     Indication: HIV TEST POSITIVE
     Dosage: 100 MG,QD
     Route: 048
     Dates: start: 200909, end: 20101004
  3. FUROSEMIDE. [Concomitant]
     Active Substance: FUROSEMIDE
     Dosage: UNK UNK,UNK
     Route: 048
     Dates: start: 201010
  4. LERCAN [Concomitant]
     Active Substance: LERCANIDIPINE
     Indication: HYPERTENSION
     Dosage: UNK UNK,UNK
     Route: 048
     Dates: start: 200811
  5. FERROUS SULFATE. [Concomitant]
     Active Substance: FERROUS SULFATE
     Indication: PRODUCT USED FOR UNKNOWN INDICATION
     Dosage: UNK UNK,UNK
     Route: 048
     Dates: start: 200811
  6. SOLUPRED (PREDNISOLONE) [Suspect]
     Active Substance: PREDNISOLONE
     Indication: HAEMOLYTIC ANAEMIA
     Dosage: 5 MG,QD
     Route: 048
     Dates: start: 200811, end: 20101004
  7. RAMIPRIL. [Concomitant]
     Active Substance: RAMIPRIL
     Indication: HYPERTENSION
     Dosage: UNK UNK,UNK
     Route: 048
     Dates: start: 201010
  8. FUROSEMIDE. [Concomitant]
     Active Substance: FUROSEMIDE
     Indication: HYPERTENSION
     Dosage: UNK UNK,UNK
     Route: 048
     Dates: start: 200811, end: 20101004
  9. ROSUVASTATIN CALCIUM. [Concomitant]
     Active Substance: ROSUVASTATIN CALCIUM
     Indication: DYSLIPIDAEMIA
     Dosage: UNK UNK,UNK
     Route: 048
     Dates: start: 200811
  10. RAMIPRIL. [Concomitant]
     Active Substance: RAMIPRIL
     Dosage: UNK UNK,UNK
     Route: 048
     Dates: start: 200811, end: 20101004
  11. ZIAGEN [Concomitant]
     Active Substance: ABACAVIR SULFATE
     Indication: HIV TEST POSITIVE
     Dosage: 300 MG,BID
     Route: 048
     Dates: start: 200812
  12. ATAZANAVIR SULFATE. [Suspect]
     Active Substance: ATAZANAVIR SULFATE
     Indication: HIV TEST POSITIVE
     Dosage: 300 MG,QD
     Route: 048
     Dates: start: 200909, end: 20101004
  13. URAPIDIL [Concomitant]
     Active Substance: URAPIDIL
     Indication: HYPERTENSION
     Dosage: UNK UNK,UNK
     Route: 048
     Dates: start: 200811
  14. INIPOMP [Concomitant]
     Active Substance: PANTOPRAZOLE SODIUM
     Indication: PRODUCT USED FOR UNKNOWN INDICATION
     Dosage: UNK UNK,UNK
     Route: 048
     Dates: start: 200811
  15. ATENOLOL. [Concomitant]
     Active Substance: ATENOLOL
     Indication: HYPERTENSION
     Dosage: UNK
     Dates: start: 200811
  16. HYPERIUM [Concomitant]
     Active Substance: RILMENIDINE PHOSPHATE
     Indication: MALIGNANT HYPERTENSION
     Dosage: UNK UNK,UNK
     Route: 048
     Dates: start: 200811
  17. GAVISCON [ALUMINIUM HYDROXIDE GEL, DRIED;MAGNESIUM TRISILICATE] [Concomitant]
     Indication: PRODUCT USED FOR UNKNOWN INDICATION
     Dosage: UNK
     Route: 048
     Dates: start: 200811

REACTIONS (3)
  - Renal tubular disorder [Recovered/Resolved]
  - Blood creatinine increased [Recovered/Resolved]
  - Crystal urine [Recovered/Resolved]

NARRATIVE: CASE EVENT DATE: 201009
